FAERS Safety Report 19002960 (Version 3)
Quarter: 2021Q2

REPORT INFORMATION
  Report Type: Spontaneous
  Country: IT (occurrence: IT)
  Receive Date: 20210312
  Receipt Date: 20210416
  Transmission Date: 20210717
  Serious: Yes (Other)
  Sender: FDA-Public Use
  Company Number: NVSC2021IT053886

PATIENT
  Sex: Female

DRUGS (3)
  1. DOSTINEX [Concomitant]
     Active Substance: CABERGOLINE
     Indication: PITUITARY TUMOUR BENIGN
     Dosage: 0.5 DF, Q2W (THERAPY FOR 3 YEARS)
     Route: 065
  2. GILENYA [Suspect]
     Active Substance: FINGOLIMOD HYDROCHLORIDE
     Dosage: 0.5 MG, EVERY OTHER DAY
     Route: 065
     Dates: start: 20210203
  3. GILENYA [Suspect]
     Active Substance: FINGOLIMOD HYDROCHLORIDE
     Indication: PRODUCT USED FOR UNKNOWN INDICATION
     Dosage: 0.5 MG, QD
     Route: 065
     Dates: start: 20201111, end: 20210204

REACTIONS (3)
  - Lymphopenia [Not Recovered/Not Resolved]
  - Off label use [Unknown]
  - Neutropenia [Unknown]
